FAERS Safety Report 8352872-6 (Version None)
Quarter: 2012Q2

REPORT INFORMATION
  Report Type: 
  Country: None (occurrence: None)
  Receive Date: 20120511
  Receipt Date: 20120503
  Transmission Date: 20120825
  Serious: Yes (Hospitalization)
  Sender: FDA-Public Use
  Company Number: NL-MEDIMMUNE-MEDI-0014805

PATIENT
  Sex: Female

DRUGS (3)
  1. SYNAGIS [Suspect]
     Indication: PREMATURE BABY
     Route: 030
     Dates: start: 20111206, end: 20120102
  2. NYSTATIN [Concomitant]
     Dates: start: 20120202
  3. SYNAGIS [Suspect]
     Route: 030
     Dates: start: 20120131, end: 20120131

REACTIONS (4)
  - MILK ALLERGY [None]
  - GASTROOESOPHAGEAL REFLUX DISEASE [None]
  - PAIN [None]
  - CRYING [None]
